FAERS Safety Report 8858512 (Version 3)
Quarter: 2013Q2

REPORT INFORMATION
  Report Type: Report from Study
  Country: GR (occurrence: GR)
  Receive Date: 20121024
  Receipt Date: 20130422
  Transmission Date: 20140414
  Serious: Yes (Other)
  Sender: FDA-Public Use
  Company Number: PHHY2012GR091983

PATIENT
  Age: 39 Year
  Sex: Female

DRUGS (1)
  1. EXTAVIA [Suspect]
     Indication: MULTIPLE SCLEROSIS
     Dates: start: 20120714

REACTIONS (7)
  - Arrhythmia [Unknown]
  - Heart rate decreased [Unknown]
  - Leukocytosis [Unknown]
  - Stomatitis [Unknown]
  - Gait disturbance [Unknown]
  - Haematocrit decreased [Unknown]
  - Platelet count decreased [Unknown]
